FAERS Safety Report 13855266 (Version 1)
Quarter: 2017Q3

REPORT INFORMATION
  Report Type: Spontaneous
  Country: US (occurrence: US)
  Receive Date: 20170810
  Receipt Date: 20170810
  Transmission Date: 20171127
  Serious: No
  Sender: FDA-Public Use
  Company Number: US-TEIKOKU PHARMA USA-TPU2017-00358

PATIENT
  Weight: 77.18 kg

DRUGS (2)
  1. LIDOCAINE PATCH [Suspect]
     Active Substance: LIDOCAINE
     Indication: BACK PAIN
     Dosage: 2-3 PATCHES APPLIED TO BACK AT NIGHT FOR 12 HOURS (USUALLY LESS), THEN OFF FOR 12 OR MORE HOURS.
     Route: 061
     Dates: start: 20170613
  2. LIDOCAINE PATCH [Suspect]
     Active Substance: LIDOCAINE
     Dosage: 1-2 PATCHES APPLIED TO BACK AT NIGHT FOR 12 HOURS ON 12 HOURS OFF.
     Route: 061

REACTIONS (1)
  - Application site erythema [Not Recovered/Not Resolved]
